FAERS Safety Report 5618191-3 (Version None)
Quarter: 2008Q1

REPORT INFORMATION
  Report Type: 
  Country: None (occurrence: None)
  Receive Date: 20080207
  Receipt Date: 20071130
  Transmission Date: 20080703
  Serious: No
  Sender: FDA-Public Use
  Company Number: A0696804A

PATIENT
  Sex: Female

DRUGS (4)
  1. PAXIL [Suspect]
     Indication: ANXIETY DISORDER
     Dosage: 20MG PER DAY
     Route: 048
     Dates: start: 20071117
  2. LYRICA [Concomitant]
  3. HYDROCHLOROTHIAZIDE [Concomitant]
  4. BENICAR [Concomitant]

REACTIONS (2)
  - HEADACHE [None]
  - MIGRAINE [None]
